FAERS Safety Report 18485333 (Version 1)
Quarter: 2020Q4

REPORT INFORMATION
  Report Type: Spontaneous
  Country: US (occurrence: US)
  Receive Date: 20201109
  Receipt Date: 20201109
  Transmission Date: 20210114
  Serious: Yes (Death, Hospitalization)
  Sender: FDA-Public Use
  Company Number: None

PATIENT
  Age: 4 Year
  Sex: Female
  Weight: 13.3 kg

DRUGS (6)
  1. ONCASPAR [Suspect]
     Active Substance: PEGASPARGASE
     Dates: end: 20201020
  2. CYCLOPHOSPHAMIDE. [Suspect]
     Active Substance: CYCLOPHOSPHAMIDE
     Dates: end: 20201006
  3. CYTARABINE. [Suspect]
     Active Substance: CYTARABINE
     Dates: end: 20201016
  4. METHOTREXATE. [Suspect]
     Active Substance: METHOTREXATE
     Dates: end: 20201013
  5. THIOGUANINE (6-TG) [Suspect]
     Active Substance: THIOGUANINE ANHYDROUS
     Dates: end: 20201019
  6. VINCRISTINE SULFATE. [Suspect]
     Active Substance: VINCRISTINE SULFATE
     Dates: end: 20201027

REACTIONS (8)
  - Candida infection [None]
  - Respiratory failure [None]
  - Systemic inflammatory response syndrome [None]
  - Febrile neutropenia [None]
  - Blood culture positive [None]
  - Multiple organ dysfunction syndrome [None]
  - Systemic candida [None]
  - Cardio-respiratory arrest [None]

NARRATIVE: CASE EVENT DATE: 20201027
